FAERS Safety Report 10164319 (Version 1)
Quarter: 2014Q2

REPORT INFORMATION
  Report Type: Spontaneous
  Country: US (occurrence: US)
  Receive Date: 20140510
  Receipt Date: 20140510
  Transmission Date: 20141212
  Serious: No
  Sender: FDA-Public Use
  Company Number: US-BRISTOL-MYERS SQUIBB COMPANY-20044632

PATIENT
  Age: 80 Year
  Sex: Male
  Weight: 102.94 kg

DRUGS (9)
  1. BYDUREON [Suspect]
     Indication: TYPE 2 DIABETES MELLITUS
     Route: 058
     Dates: start: 20140116
  2. GABAPENTIN [Concomitant]
  3. SIMVASTATIN [Concomitant]
  4. EPITOL [Concomitant]
  5. LISINOPRIL [Concomitant]
  6. METOPROLOL [Concomitant]
  7. AMLODIPINE [Concomitant]
  8. GLIPIZIDE [Concomitant]
  9. INSULIN [Concomitant]

REACTIONS (1)
  - Injection site extravasation [Unknown]
